FAERS Safety Report 20882919 (Version 1)
Quarter: 2022Q2

REPORT INFORMATION
  Report Type: Spontaneous
  Country: US (occurrence: None)
  Receive Date: 20220526
  Receipt Date: 20220526
  Transmission Date: 20220721
  Serious: Yes (unspecified)
  Sender: FDA-Public Use
  Company Number: None

PATIENT
  Age: 30 Year
  Sex: Female

DRUGS (1)
  1. HERBALS\TETRAHYDROCANNABINOL MIXED [Suspect]
     Active Substance: HERBALS\TETRAHYDROCANNABINOL MIXED

REACTIONS (2)
  - Overdose [None]
  - Muscle spasms [None]

NARRATIVE: CASE EVENT DATE: 20220513
